FAERS Safety Report 8510702-3 (Version None)
Quarter: 2012Q3

REPORT INFORMATION
  Report Type: 
  Country: None (occurrence: None)
  Receive Date: 20120703
  Receipt Date: 20120622
  Transmission Date: 20120928
  Serious: Yes (Hospitalization, Other)
  Sender: FDA-Public Use
  Company Number: AUR-APL-2012-02778

PATIENT
  Age: 58 Year
  Sex: Male

DRUGS (9)
  1. LANTUS [Concomitant]
  2. ESOMEPRAZOLE MAGNESIUM [Suspect]
     Indication: PRODUCT USED FOR UNKNOWN INDICATION
     Dosage: ORAL
     Route: 048
     Dates: start: 20120301, end: 20120428
  3. TWYNSTA [Suspect]
     Indication: HYPERTENSION
     Dosage: 80MG/5MG DAILY,ORAL
     Route: 048
  4. BISOPROLOL FUMARATE [Concomitant]
  5. KARDEGIC(ACETYLSALICYLATE LYSINE) [Concomitant]
  6. METFFORMIN HYDROCHLORIDE [Suspect]
     Indication: INSULIN-REQUIRING TYPE 2 DIABETES MELLITUS
     Dosage: 3 GM (1 GM,3 IN 1 D),ORAL
     Route: 048
     Dates: end: 20120428
  7. RAMIPRIL [Suspect]
     Indication: PRODUCT USED FOR UNKNOWN INDICATION
     Dosage: 10 MG (10 MG, 1 IN 1 D),ORAL
     Route: 048
     Dates: end: 20120428
  8. CRESTOR [Suspect]
     Indication: PRODUCT USED FOR UNKNOWN INDICATION
     Dosage: 20 MG {20 MG,  1 IN 1 D),ORAL
     Route: 048
     Dates: end: 20120428
  9. HUMALOG [Concomitant]

REACTIONS (12)
  - HEPATITIS A [None]
  - BLOOD PRESSURE INCREASED [None]
  - HERPES SIMPLEX [None]
  - CHILLS [None]
  - RENAL IMPAIRMENT [None]
  - NAUSEA [None]
  - CYTOLYTIC HEPATITIS [None]
  - ABDOMINAL PAIN [None]
  - HEPATITIS ACUTE [None]
  - CHOLESTASIS [None]
  - PYREXIA [None]
  - HEPATITIS CHOLESTATIC [None]
